FAERS Safety Report 25434965 (Version 2)
Quarter: 2025Q2

REPORT INFORMATION
  Report Type: Spontaneous
  Country: FR (occurrence: FR)
  Receive Date: 20250613
  Receipt Date: 20250627
  Transmission Date: 20250716
  Serious: Yes (Death, Hospitalization, Other)
  Sender: TEVA
  Company Number: FR-TEVA-VS-3341009

PATIENT
  Age: 84 Year
  Sex: Male

DRUGS (5)
  1. PACLITAXEL [Suspect]
     Active Substance: PACLITAXEL
     Indication: Hormone receptor positive breast cancer
     Route: 065
  2. METHYLPREDNISOLONE [Suspect]
     Active Substance: METHYLPREDNISOLONE
     Indication: Chemotherapy side effect prophylaxis
     Route: 042
  3. METHYLPREDNISOLONE [Suspect]
     Active Substance: METHYLPREDNISOLONE
     Indication: Chemotherapy side effect prophylaxis
     Route: 065
  4. TRASTUZUMAB [Suspect]
     Active Substance: TRASTUZUMAB
     Indication: Hormone receptor positive breast cancer
     Route: 065
  5. TRASTUZUMAB [Suspect]
     Active Substance: TRASTUZUMAB
     Indication: Hormone receptor positive breast cancer
     Route: 065

REACTIONS (3)
  - Pneumocystis jirovecii pneumonia [Fatal]
  - Asthenia [Unknown]
  - Acute respiratory distress syndrome [Fatal]
